FAERS Safety Report 9692859 (Version 2)
Quarter: 2013Q4

REPORT INFORMATION
  Report Type: Other
  Country: US (occurrence: US)
  Receive Date: 20131118
  Receipt Date: 20131118
  Transmission Date: 20140711
  Serious: Yes (Death)
  Sender: FDA-Public Use
  Company Number: US-SHIRE-ALL1-2011-00575

PATIENT
  Age: 70 Year
  Sex: Female
  Weight: 78 kg

DRUGS (9)
  1. FOSRENOL [Suspect]
     Indication: HYPERPHOSPHATAEMIA
     Dosage: 1000 MG, OTHER (WITH MEALS)
     Route: 048
  2. FOSRENOL [Suspect]
     Indication: RENAL FAILURE CHRONIC
     Dosage: UNK MG, OTHER(HALF OF A 1,000MGTABLET WITH SNACKS)
     Route: 048
  3. SYNTHROID [Concomitant]
     Indication: HYPOTHYROIDISM
     Dosage: 0.1 MG, 1X/DAY:QD
     Route: 048
  4. GLIMEPIRIDE [Concomitant]
     Indication: TYPE 2 DIABETES MELLITUS
     Dosage: 0.5 MG, 1X/DAY:QD
     Route: 048
  5. ENABLEX                            /01760401/ [Concomitant]
     Indication: URINARY INCONTINENCE
     Dosage: 7.5 MG, UNKNOWN
     Route: 048
  6. NORVASC [Concomitant]
     Indication: HYPERTENSION
     Dosage: 10 MG, AS REQ^D
     Route: 048
  7. CELEXA                             /00582602/ [Concomitant]
     Indication: DEPRESSION
     Dosage: 400 MG, UNKNOWN
     Route: 048
  8. SIMVASTATIN [Concomitant]
     Indication: HYPERLIPIDAEMIA
     Dosage: UNK UNK, UNKNOWN
     Route: 065
  9. MULTIVITAMIN                       /00831701/ [Concomitant]
     Indication: VITAMIN SUPPLEMENTATION
     Dosage: UNK, UNKNOWN
     Route: 048

REACTIONS (2)
  - Acute myocardial infarction [Fatal]
  - Infected dermal cyst [Recovering/Resolving]
